FAERS Safety Report 15165832 (Version 1)
Quarter: 2018Q4

REPORT INFORMATION
  Report Type: Spontaneous
  Country: US (occurrence: US)
  Receive Date: 20180719
  Receipt Date: 20180719
  Transmission Date: 20190204
  Serious: No
  Sender: FDA-Public Use
  Company Number: US-RECRO GAINESVILLE LLC-REC-2016-000003

PATIENT
  Age: 70 Year
  Sex: Female

DRUGS (1)
  1. VERAPAMIL HYDROCHLORIDE SUSTAINED RELEASE [Suspect]
     Active Substance: VERAPAMIL HYDROCHLORIDE
     Indication: HYPERTENSION
     Dosage: 240 MG, SUSTAINED RELEASE CAPSULES, UNK
     Route: 048

REACTIONS (9)
  - Visual impairment [Unknown]
  - Headache [Unknown]
  - Drug ineffective [Unknown]
  - Pallor [Unknown]
  - Syncope [Unknown]
  - Dizziness [Unknown]
  - Chest discomfort [Unknown]
  - Malaise [Unknown]
  - Heart rate increased [Unknown]
